FAERS Safety Report 24168132 (Version 2)
Quarter: 2025Q2

REPORT INFORMATION
  Report Type: Spontaneous
  Country: US (occurrence: US)
  Receive Date: 20240802
  Receipt Date: 20250624
  Transmission Date: 20250717
  Serious: No
  Sender: SANOFI AVENTIS
  Company Number: US-SA-SAC20240731000600

PATIENT
  Age: 60 Year
  Sex: Female
  Weight: 89 kg

DRUGS (22)
  1. REZUROCK [Suspect]
     Active Substance: BELUMOSUDIL
     Indication: Chronic graft versus host disease
     Dosage: 200 MG, QD
     Route: 048
  2. ELIQUIS [Concomitant]
     Active Substance: APIXABAN
  3. LEVOTHYROXINE [Concomitant]
     Active Substance: LEVOTHYROXINE
  4. MONTELUKAST [Concomitant]
     Active Substance: MONTELUKAST
  5. ACYCLOVIR [Concomitant]
     Active Substance: ACYCLOVIR
  6. PREDNISONE [Concomitant]
     Active Substance: PREDNISONE
  7. VILAZODONE [Concomitant]
     Active Substance: VILAZODONE
  8. TRAMADOL [Concomitant]
     Active Substance: TRAMADOL
  9. ADVAIR HFA [Concomitant]
     Active Substance: FLUTICASONE PROPIONATE\SALMETEROL XINAFOATE
  10. TRIAMCINOLONE [Concomitant]
     Active Substance: TRIAMCINOLONE
  11. ONE DAILY MULTI VITAMINS [Concomitant]
  12. BACLOFEN [Concomitant]
     Active Substance: BACLOFEN
  13. RITUXAN [Concomitant]
     Active Substance: RITUXIMAB
  14. NITROFURANTOIN [Concomitant]
     Active Substance: NITROFURANTOIN
  15. METOPROLOL TARTRATE [Concomitant]
     Active Substance: METOPROLOL TARTRATE
  16. ASPIRIN [Concomitant]
     Active Substance: ASPIRIN
  17. AUGMENTIN [Concomitant]
     Active Substance: AMOXICILLIN\CLAVULANATE POTASSIUM
  18. CLONAZEPAM [Concomitant]
     Active Substance: CLONAZEPAM
  19. BACTRIM DS [Concomitant]
     Active Substance: SULFAMETHOXAZOLE\TRIMETHOPRIM
  20. VORICONAZOLE [Concomitant]
     Active Substance: VORICONAZOLE
  21. METHYLPHENIDATE [Concomitant]
     Active Substance: METHYLPHENIDATE
  22. CALCIUM\CHOLECALCIFEROL [Concomitant]
     Active Substance: CALCIUM\CHOLECALCIFEROL
     Dosage: UNK, QD

REACTIONS (3)
  - Trismus [Unknown]
  - Muscle spasms [Unknown]
  - Drug ineffective [Unknown]
